FAERS Safety Report 9214434 (Version 1)
Quarter: 2013Q2

REPORT INFORMATION
  Report Type: Spontaneous
  Country: SG (occurrence: SG)
  Receive Date: 20130405
  Receipt Date: 20130405
  Transmission Date: 20140414
  Serious: Yes (Other)
  Sender: FDA-Public Use
  Company Number: SG-BAYER-2013-041540

PATIENT
  Age: 19 Year
  Sex: Male

DRUGS (5)
  1. ACETYLSALICYLIC ACID({=100 MG) [Suspect]
     Dosage: UNK
  2. AMOXICILLINE [Suspect]
  3. BRUFEN [Suspect]
  4. NAPROXEN SODIUM ({= 220 MG) [Suspect]
  5. PONSTAN [Suspect]

REACTIONS (2)
  - Eye swelling [Unknown]
  - Dyspnoea [Unknown]
